FAERS Safety Report 4844467-3 (Version None)
Quarter: 2005Q4

REPORT INFORMATION
  Report Type: 
  Country: None (occurrence: None)
  Receive Date: 20051202
  Receipt Date: 20040720
  Transmission Date: 20060501
  Serious: Yes (Hospitalization, Other)
  Sender: FDA-Public Use
  Company Number: US-MERCK-0407USA01749

PATIENT
  Age: 50 Year
  Sex: Female
  Weight: 67 kg

DRUGS (20)
  1. ESTROPIPATE [Concomitant]
     Route: 048
  2. CLARITIN-D [Concomitant]
     Route: 048
  3. SKELAXIN [Concomitant]
     Route: 048
  4. KETOCONAZOLE [Concomitant]
     Route: 048
  5. PREDNISONE [Concomitant]
     Route: 048
  6. BIAXIN [Concomitant]
     Route: 048
  7. DIFLUCAN [Concomitant]
     Route: 065
  8. TRIMOX [Concomitant]
     Route: 048
  9. HYDROCODONE BITARTRATE [Concomitant]
     Route: 048
  10. DIOVAN [Concomitant]
     Route: 048
  11. VIOXX [Suspect]
     Indication: PAIN
     Route: 048
     Dates: start: 20000701, end: 20020128
  12. VIOXX [Suspect]
     Route: 048
  13. VIOXX [Suspect]
     Indication: FACET JOINT SYNDROME
     Route: 048
     Dates: start: 20000701, end: 20020128
  14. VIOXX [Suspect]
     Route: 048
  15. ASPIRIN [Concomitant]
     Indication: CEREBROVASCULAR ACCIDENT PROPHYLAXIS
     Route: 048
  16. MOTRIN [Concomitant]
     Route: 048
     Dates: start: 20020701, end: 20021101
  17. TYLENOL [Concomitant]
     Route: 048
     Dates: start: 20020701, end: 20021101
  18. BUTALBITAL [Concomitant]
     Route: 048
  19. GUAIFENEX [Concomitant]
     Route: 048
  20. CLIDINIUM BROMIDE [Concomitant]
     Route: 048

REACTIONS (33)
  - ABDOMINAL PAIN [None]
  - ANGINA PECTORIS [None]
  - ANGINA UNSTABLE [None]
  - CEREBROVASCULAR ACCIDENT [None]
  - CERVICAL CORD COMPRESSION [None]
  - COLONIC POLYP [None]
  - CORONARY ARTERY DISEASE [None]
  - DIABETES MELLITUS NON-INSULIN-DEPENDENT [None]
  - DYSPEPSIA [None]
  - DYSPHAGIA [None]
  - DYSPHONIA [None]
  - DYSPNOEA [None]
  - FATIGUE [None]
  - GALLBLADDER DISORDER [None]
  - HEART RATE IRREGULAR [None]
  - INSOMNIA [None]
  - INTERVERTEBRAL DISC DISORDER [None]
  - INTERVERTEBRAL DISC PROTRUSION [None]
  - IRRITABLE BOWEL SYNDROME [None]
  - MALAISE [None]
  - MIDDLE EAR DISORDER [None]
  - MUSCULOSKELETAL DISCOMFORT [None]
  - NON-CARDIAC CHEST PAIN [None]
  - OBESITY [None]
  - PALPITATIONS [None]
  - PARAESTHESIA [None]
  - SPINAL COLUMN STENOSIS [None]
  - SWELLING [None]
  - SWELLING FACE [None]
  - TINNITUS [None]
  - VOCAL CORD THICKENING [None]
  - WEIGHT DECREASED [None]
  - WEIGHT INCREASED [None]
